FAERS Safety Report 19066514 (Version 4)
Quarter: 2021Q2

REPORT INFORMATION
  Report Type: Report from Study
  Country: US (occurrence: US)
  Receive Date: 20210328
  Receipt Date: 20210621
  Transmission Date: 20210717
  Serious: Yes (Other)
  Sender: FDA-Public Use
  Company Number: NVSC2021US065014

PATIENT
  Sex: Female

DRUGS (1)
  1. ENTRESTO [Suspect]
     Active Substance: SACUBITRIL\VALSARTAN
     Indication: PRODUCT USED FOR UNKNOWN INDICATION
     Dosage: UNK UNK, BID
     Route: 048
     Dates: start: 20210219

REACTIONS (7)
  - SARS-CoV-2 test [Unknown]
  - Pneumonia [Recovering/Resolving]
  - Hypersomnia [Unknown]
  - Brain cancer metastatic [Unknown]
  - Fluid intake reduced [Unknown]
  - Product dose omission issue [Unknown]
  - Taste disorder [Unknown]
